FAERS Safety Report 9089179 (Version 1)
Quarter: 2013Q1

REPORT INFORMATION
  Report Type: Spontaneous
  Country: ES (occurrence: ES)
  Receive Date: 20130131
  Receipt Date: 20130131
  Transmission Date: 20140127
  Serious: Yes (Hospitalization, Other)
  Sender: FDA-Public Use
  Company Number: ES-PFIZER INC-2013036559

PATIENT
  Age: 91 Year
  Sex: Male

DRUGS (1)
  1. TRANGOREX [Suspect]
     Indication: ATRIAL FLUTTER
     Dosage: UNK, DAILY
     Route: 048
     Dates: start: 2009, end: 201211

REACTIONS (2)
  - Hyperthyroidism [Recovering/Resolving]
  - Acute myocardial infarction [Unknown]
